FAERS Safety Report 19812089 (Version 2)
Quarter: 2021Q3

REPORT INFORMATION
  Report Type: Spontaneous
  Country: MX (occurrence: MX)
  Receive Date: 20210909
  Receipt Date: 20210924
  Transmission Date: 20211014
  Serious: Yes (Death, Hospitalization, Other)
  Sender: FDA-Public Use
  Company Number: MX-GLAXOSMITHKLINE-MX2021AMR189751

PATIENT
  Sex: Female

DRUGS (1)
  1. NIRAPARIB [Suspect]
     Active Substance: NIRAPARIB
     Indication: OVARIAN CANCER
     Dosage: 200 MG, QD
     Dates: start: 20210727, end: 20210810

REACTIONS (20)
  - Neurological decompensation [Unknown]
  - Abdominal distension [Unknown]
  - Vomiting [Unknown]
  - Gastrointestinal toxicity [Not Recovered/Not Resolved]
  - Condition aggravated [Unknown]
  - Carbohydrate antigen 125 increased [Unknown]
  - Multiple organ dysfunction syndrome [Fatal]
  - Hypokalaemia [Unknown]
  - Abdominal pain [Recovered/Resolved]
  - Hyponatraemia [Unknown]
  - Pain [Unknown]
  - Abdominal discomfort [Unknown]
  - Pulmonary embolism [Fatal]
  - Nausea [Not Recovered/Not Resolved]
  - Intestinal obstruction [Recovered/Resolved]
  - Respiratory failure [Fatal]
  - Electrolyte imbalance [Unknown]
  - Hypochloraemia [Unknown]
  - Thrombocytopenia [Unknown]
  - Gastrointestinal disorder [Unknown]
